FAERS Safety Report 16539661 (Version 1)
Quarter: 2019Q3

REPORT INFORMATION
  Report Type: Spontaneous
  Country: US (occurrence: US)
  Receive Date: 20190524
  Receipt Date: 20190524
  Transmission Date: 20191004
  Serious: No
  Sender: FDA-Public Use
  Company Number: None

PATIENT
  Age: 34 Year
  Sex: Female

DRUGS (1)
  1. METOPROLOL TAB 100MG ER [Suspect]
     Active Substance: METOPROLOL
     Dates: start: 201801

REACTIONS (1)
  - Thrombosis [None]
